FAERS Safety Report 13786661 (Version 1)
Quarter: 2017Q3

REPORT INFORMATION
  Report Type: Spontaneous
  Country: US (occurrence: US)
  Receive Date: 20170725
  Receipt Date: 20170725
  Transmission Date: 20171127
  Serious: Yes (Hospitalization)
  Sender: FDA-Public Use
  Company Number: None

PATIENT
  Age: 70 Year
  Sex: Male
  Weight: 115.9 kg

DRUGS (1)
  1. TADALAFIL, IND EXEMPT:APPROVED [Suspect]
     Active Substance: TADALAFIL

REACTIONS (7)
  - Productive cough [None]
  - Diarrhoea [None]
  - Chest discomfort [None]
  - Chills [None]
  - Headache [None]
  - Sputum discoloured [None]
  - Hyperhidrosis [None]

NARRATIVE: CASE EVENT DATE: 20170718
